FAERS Safety Report 15006039 (Version 1)
Quarter: 2018Q2

REPORT INFORMATION
  Report Type: Spontaneous
  Country: US (occurrence: US)
  Receive Date: 20180521
  Receipt Date: 20180521
  Transmission Date: 20180711
  Serious: Yes (Hospitalization)
  Sender: FDA-Public Use
  Company Number: None

PATIENT
  Age: 85 Year
  Sex: Male
  Weight: 93.7 kg

DRUGS (11)
  1. VITD [Concomitant]
  2. ECOTRIN [Concomitant]
     Active Substance: ASPIRIN
  3. HYDREA [Concomitant]
     Active Substance: HYDROXYUREA
  4. ACTOS [Concomitant]
     Active Substance: PIOGLITAZONE HYDROCHLORIDE
  5. ZOSYN [Suspect]
     Active Substance: PIPERACILLIN SODIUM\TAZOBACTAM SODIUM
     Indication: SCAN WITH CONTRAST
     Route: 042
  6. OMNIPAQUE [Suspect]
     Active Substance: IOHEXOL
  7. ENALAPRIL 5MG MYLAN [Suspect]
     Active Substance: ENALAPRIL
  8. SYNTHROID [Concomitant]
     Active Substance: LEVOTHYROXINE SODIUM
  9. ZOCOR [Concomitant]
     Active Substance: SIMVASTATIN
  10. VANCOMYCIN [Suspect]
     Active Substance: VANCOMYCIN
     Indication: CELLULITIS
     Dosage: 1000 MG IN NS0.9%; Q18HRS; IV?
     Route: 042
  11. AMARYL [Concomitant]
     Active Substance: GLIMEPIRIDE

REACTIONS (5)
  - Hyperkalaemia [None]
  - Nephropathy toxic [None]
  - Renal impairment [None]
  - Hyponatraemia [None]
  - Acute kidney injury [None]

NARRATIVE: CASE EVENT DATE: 20180117
